FAERS Safety Report 19130732 (Version 1)
Quarter: 2021Q2

REPORT INFORMATION
  Report Type: Spontaneous
  Country: US (occurrence: US)
  Receive Date: 20210414
  Receipt Date: 20210414
  Transmission Date: 20210717
  Serious: Yes (Hospitalization)
  Sender: FDA-Public Use
  Company Number: US-Y-MABS THERAPEUTICS-2109298

PATIENT
  Sex: Male

DRUGS (7)
  1. DANYELZA [Suspect]
     Active Substance: NAXITAMAB-GQGK
     Indication: NEUROBLASTOMA
     Route: 042
     Dates: start: 20210301, end: 20210305
  2. LEUKINE [Concomitant]
     Active Substance: SARGRAMOSTIM
  3. TORADOL [Concomitant]
     Active Substance: KETOROLAC TROMETHAMINE
  4. TYLENOL [Concomitant]
     Active Substance: ACETAMINOPHEN
  5. FAMOTIDINE. [Concomitant]
     Active Substance: FAMOTIDINE
  6. LORATADINE. [Concomitant]
     Active Substance: LORATADINE
  7. OXYCODONE. [Concomitant]
     Active Substance: OXYCODONE HYDROCHLORIDE

REACTIONS (5)
  - Pain [Unknown]
  - Abdominal pain [Unknown]
  - Haemorrhage [Unknown]
  - Decreased appetite [Unknown]
  - Constipation [Unknown]
